FAERS Safety Report 4360960-4 (Version None)
Quarter: 2004Q2

REPORT INFORMATION
  Report Type: 
  Country: None (occurrence: None)
  Receive Date: 20040514
  Receipt Date: 20040504
  Transmission Date: 20050107
  Serious: Yes (Hospitalization)
  Sender: FDA-Public Use
  Company Number: STA-AE-04-MTX-183

PATIENT
  Age: 54 Year
  Sex: Male

DRUGS (10)
  1. METHOTREXATE [Suspect]
     Dosage: 15 MG 1 X PER 1 WK, ORAL
     Route: 048
     Dates: start: 20000705, end: 20030301
  2. METHOTREXATE [Suspect]
     Dosage: 15 MG 1 X PER 1 WK, ORAL
     Route: 048
     Dates: start: 20030101
  3. ENBREL [Suspect]
     Indication: RHEUMATOID ARTHRITIS
     Dosage: 25 MG 2 X PER 1 WK, SC
     Route: 058
     Dates: start: 20021101, end: 20030301
  4. ENBREL [Suspect]
     Dosage: 25 MG, 2X PER 1 WK, SC
     Route: 058
     Dates: start: 20030101
  5. PREDNISONE [Suspect]
     Dosage: 7.5 MG 1 X PER 1 DAY, ORAL
     Route: 048
     Dates: start: 20000327
  6. FOLIC ACID [Concomitant]
  7. PRINIVIL [Concomitant]
  8. HYDROCHLOROTHIAZIDE [Concomitant]
  9. VALDECOXIB [Concomitant]
  10. DEPO-TESTOSTERONE [Concomitant]

REACTIONS (3)
  - CELLULITIS [None]
  - LYMPHADENOPATHY [None]
  - LYMPHANGITIS [None]
